FAERS Safety Report 11539257 (Version 2)
Quarter: 2015Q3

REPORT INFORMATION
  Report Type: Spontaneous
  Country: US (occurrence: US)
  Receive Date: 20150923
  Receipt Date: 20150925
  Transmission Date: 20151125
  Serious: No
  Sender: FDA-Public Use
  Company Number: US-PFIZER INC-2015310748

PATIENT
  Age: 81 Year
  Sex: Female

DRUGS (4)
  1. LYRICA [Suspect]
     Active Substance: PREGABALIN
     Dosage: 100 MG, ALTERNATE DAY
     Route: 048
     Dates: end: 20150907
  2. GLIMEPIRIDE. [Concomitant]
     Active Substance: GLIMEPIRIDE
     Indication: DIABETES MELLITUS
     Dosage: 2 MG, 2X/DAY (ONE IN THE MORNING AND ONE AT NIGHT)
  3. ROPINIROLE HCL [Concomitant]
     Active Substance: ROPINIROLE HYDROCHLORIDE
     Indication: RESTLESS LEGS SYNDROME
     Dosage: 1 MG, UNK
  4. LYRICA [Suspect]
     Active Substance: PREGABALIN
     Indication: PLASMA CELL MYELOMA
     Dosage: 100 MG, 2X/DAY (ONE IN MORNING AND ONE AT NIGHT)
     Route: 048
     Dates: start: 2011

REACTIONS (10)
  - Nausea [Unknown]
  - Feeling abnormal [Unknown]
  - Pollakiuria [Unknown]
  - Diarrhoea [Unknown]
  - Decreased appetite [Unknown]
  - Drug withdrawal syndrome [Unknown]
  - Product use issue [Unknown]
  - Nervousness [Unknown]
  - Swelling [Unknown]
  - Malaise [Unknown]
